FAERS Safety Report 13345769 (Version 2)
Quarter: 2017Q1

REPORT INFORMATION
  Report Type: Report from Study
  Country: CA (occurrence: CA)
  Receive Date: 20170317
  Receipt Date: 20170324
  Transmission Date: 20170428
  Serious: Yes (Other)
  Sender: FDA-Public Use
  Company Number: CA-JNJFOC-20170312864

PATIENT
  Age: 63 Year
  Sex: Female
  Weight: 76.6 kg

DRUGS (2)
  1. REMICADE [Suspect]
     Active Substance: INFLIXIMAB
     Indication: CROHN^S DISEASE
     Route: 042
     Dates: start: 20170309
  2. REMICADE [Suspect]
     Active Substance: INFLIXIMAB
     Indication: CROHN^S DISEASE
     Route: 042
     Dates: start: 20120508

REACTIONS (8)
  - Drug ineffective [Unknown]
  - Intestinal resection [Unknown]
  - Infusion related reaction [Recovered/Resolved]
  - Abdominal pain [Unknown]
  - Mucous stools [Unknown]
  - Catheter site related reaction [Unknown]
  - General physical health deterioration [Unknown]
  - Frequent bowel movements [Unknown]

NARRATIVE: CASE EVENT DATE: 20170308
